FAERS Safety Report 16224280 (Version 2)
Quarter: 2019Q2

REPORT INFORMATION
  Report Type: Report from Study
  Country: GB (occurrence: GB)
  Receive Date: 20190422
  Receipt Date: 20190423
  Transmission Date: 20190711
  Serious: Yes (Hospitalization)
  Sender: FDA-Public Use
  Company Number: GB-JNJFOC-20190114385

PATIENT
  Age: 65 Year
  Sex: Male

DRUGS (1)
  1. STELARA [Suspect]
     Active Substance: USTEKINUMAB
     Indication: CROHN^S DISEASE
     Route: 058
     Dates: start: 20181017

REACTIONS (4)
  - Malaise [Not Recovered/Not Resolved]
  - Infection [Not Recovered/Not Resolved]
  - Crohn^s disease [Unknown]
  - Surgery [Unknown]

NARRATIVE: CASE EVENT DATE: 201901
